FAERS Safety Report 10177681 (Version 1)
Quarter: 2014Q2

REPORT INFORMATION
  Report Type: Spontaneous
  Country: BE (occurrence: BE)
  Receive Date: 20140516
  Receipt Date: 20140516
  Transmission Date: 20141212
  Serious: Yes (Hospitalization, Other)
  Sender: FDA-Public Use
  Company Number: PHHY2014BE058801

PATIENT
  Age: 77 Year
  Sex: Male

DRUGS (5)
  1. METFORMIN [Suspect]
     Indication: DIABETIC ULCER
  2. FLUCLOXACILLIN [Suspect]
     Indication: DIABETIC ULCER
  3. CANDESARTAN CILEXETIL [Suspect]
  4. ACETAMINOPHEN (PARACETAMOL) [Suspect]
     Dosage: 2 G, UNK
  5. ASPIRIN [Concomitant]

REACTIONS (8)
  - Metabolic acidosis [Unknown]
  - General physical health deterioration [Unknown]
  - Nausea [Unknown]
  - Decreased appetite [Unknown]
  - Abdominal tenderness [Unknown]
  - Blood creatinine increased [Unknown]
  - Hypotension [Recovering/Resolving]
  - Hyperventilation [Unknown]
